FAERS Safety Report 17780469 (Version 6)
Quarter: 2020Q4

REPORT INFORMATION
  Report Type: Spontaneous
  Country: US (occurrence: US)
  Receive Date: 20200514
  Receipt Date: 20201215
  Transmission Date: 20210113
  Serious: Yes (Other)
  Sender: FDA-Public Use
  Company Number: US-ROCHE-2600576

PATIENT
  Age: 16 Year
  Sex: Male

DRUGS (4)
  1. HEMLIBRA [Suspect]
     Active Substance: EMICIZUMAB-KXWH
     Indication: FACTOR VIII DEFICIENCY
     Dosage: STRENGTH: 105 MG/ 0.7 ML
     Route: 058
     Dates: start: 201902
  2. HEMLIBRA [Suspect]
     Active Substance: EMICIZUMAB-KXWH
     Dosage: STRENGTH: 60 MG/40 ML
     Route: 058
     Dates: start: 201902
  3. HEMLIBRA [Suspect]
     Active Substance: EMICIZUMAB-KXWH
     Dosage: STRENGTH: 105 MG/ 0.7 ML
     Route: 058
     Dates: start: 201902
  4. HEMLIBRA [Suspect]
     Active Substance: EMICIZUMAB-KXWH
     Indication: FACTOR VIII DEFICIENCY
     Dosage: STRENGTH: 105 MG/ 0.7 ML
     Route: 058
     Dates: start: 201902

REACTIONS (4)
  - Haemorrhage [Unknown]
  - Haemarthrosis [Unknown]
  - Memory impairment [Unknown]
  - Haemorrhage [Unknown]

NARRATIVE: CASE EVENT DATE: 202011
